FAERS Safety Report 9008898 (Version 1)
Quarter: 2013Q1

REPORT INFORMATION
  Report Type: Spontaneous
  Country: FR (occurrence: FR)
  Receive Date: 20130111
  Receipt Date: 20130111
  Transmission Date: 20140127
  Serious: Yes (Hospitalization)
  Sender: FDA-Public Use
  Company Number: FR-ABBOTT-13P-056-1030038-00

PATIENT
  Age: 86 Year
  Sex: Male

DRUGS (8)
  1. ODRIK [Suspect]
     Indication: HYPERTENSION
     Route: 048
     Dates: end: 20121127
  2. TRANXENE [Suspect]
     Indication: ABNORMAL BEHAVIOUR
     Route: 048
     Dates: end: 20121127
  3. ALLOPURINOL [Suspect]
     Indication: PRODUCT USED FOR UNKNOWN INDICATION
     Route: 048
     Dates: end: 20121127
  4. FUROSEMIDE [Suspect]
     Indication: HYPERTENSION
     Route: 048
     Dates: end: 20121127
  5. RISPERIDONE [Suspect]
     Indication: ABNORMAL BEHAVIOUR
     Dosage: 1MG X 2
     Route: 048
     Dates: start: 201211, end: 20121127
  6. HYPERIUM [Suspect]
     Indication: HYPERTENSION
     Route: 048
     Dates: end: 20121127
  7. ALPRAZOLAM [Concomitant]
     Indication: ABNORMAL BEHAVIOUR
  8. ALPRAZOLAM [Concomitant]
     Dosage: INCREASED

REACTIONS (6)
  - Disturbance in attention [Recovered/Resolved]
  - Confusional state [Unknown]
  - Disorientation [Unknown]
  - Agitation [Unknown]
  - Aggression [Unknown]
  - Abnormal behaviour [Unknown]
